FAERS Safety Report 5691778-8 (Version None)
Quarter: 2008Q2

REPORT INFORMATION
  Report Type: 
  Country: None (occurrence: None)
  Receive Date: 20080401
  Receipt Date: 20080401
  Transmission Date: 20081010
  Serious: No
  Sender: FDA-Public Use
  Company Number: None

PATIENT
  Age: 70 Year
  Sex: Female
  Weight: 68.9467 kg

DRUGS (13)
  1. FORTEO [Suspect]
     Indication: OSTEOPOROSIS
     Dosage: 20MCG SUBQ ONCE DAILY  ONCE DAILY  SQ
     Route: 058
     Dates: start: 20080305, end: 20080314
  2. FORTEO [Suspect]
     Indication: OSTEOPOROSIS
     Dosage: 20MCG SUBQ ONCE DAILY  ONCE DAILY  SQ
     Route: 058
     Dates: start: 20080327, end: 20080327
  3. DARVOCET-N 100 [Concomitant]
  4. LEXAPRO [Concomitant]
  5. VITAMIN E/VITAMIN C [Concomitant]
  6. DIPHENDYDRAMINE [Concomitant]
  7. ACETAMINOPHEN [Concomitant]
  8. IMODIUM [Concomitant]
  9. MULTI-VITAMIN [Concomitant]
  10. BEANO [Concomitant]
  11. LACTAID [Concomitant]
  12. PROTONIX [Concomitant]
  13. CITRICAL [Concomitant]

REACTIONS (8)
  - CHEST DISCOMFORT [None]
  - COUGH [None]
  - FEELING OF BODY TEMPERATURE CHANGE [None]
  - HEADACHE [None]
  - HOT FLUSH [None]
  - MYALGIA [None]
  - RHINORRHOEA [None]
  - SNEEZING [None]
